FAERS Safety Report 7720121-5 (Version None)
Quarter: 2011Q3

REPORT INFORMATION
  Report Type: 
  Country: None (occurrence: None)
  Receive Date: 20110824
  Receipt Date: 20110809
  Transmission Date: 20111222
  Serious: Yes (Hospitalization)
  Sender: FDA-Public Use
  Company Number: 2011MA011578

PATIENT
  Age: 19 Year
  Sex: Male

DRUGS (3)
  1. MIRTAZAPINE [Suspect]
     Indication: DEPRESSION
     Dosage: 30 MG;QD
  2. ALPRAZOLAM [Suspect]
     Indication: DEPRESSION
     Dosage: 0.25 MG;QD
  3. LORAZEPAM [Suspect]
     Indication: DEPRESSION
     Dosage: 0.5 MG;QD

REACTIONS (8)
  - ABDOMINAL PAIN [None]
  - ALANINE AMINOTRANSFERASE INCREASED [None]
  - LIVER INJURY [None]
  - VOMITING [None]
  - ASPARTATE AMINOTRANSFERASE INCREASED [None]
  - NAUSEA [None]
  - DEPRESSION [None]
  - CONDITION AGGRAVATED [None]
